FAERS Safety Report 9913778 (Version 1)
Quarter: 2014Q1

REPORT INFORMATION
  Report Type: Spontaneous
  Country: US (occurrence: None)
  Receive Date: 20140218
  Receipt Date: 20140218
  Transmission Date: 20141002
  Serious: Yes (Hospitalization)
  Sender: FDA-Public Use
  Company Number: ABR_01495_2014

PATIENT
  Sex: Female

DRUGS (15)
  1. EDARBI [Suspect]
     Indication: HYPERTENSION
     Dosage: DF
  2. ADVAIR [Suspect]
     Indication: CHRONIC OBSTRUCTIVE PULMONARY DISEASE
     Route: 055
  3. GLYBURIDE [Concomitant]
  4. METFORMIN [Concomitant]
  5. ONGLYZA [Concomitant]
  6. XALATAN [Concomitant]
  7. SPIRIVA [Concomitant]
  8. LORATADINE [Concomitant]
  9. LIPITOR [Concomitant]
  10. RANITIDINE [Concomitant]
  11. ASPIRIN [Concomitant]
  12. VITAMINA C [Concomitant]
  13. CALCIUM [Concomitant]
  14. CENTRUM SILVER [Concomitant]
  15. COMBIVENT [Concomitant]

REACTIONS (7)
  - Dry skin [None]
  - Wound [None]
  - Cellulitis [None]
  - Joint swelling [None]
  - Hypotension [None]
  - Blood pressure systolic increased [None]
  - Skin fissures [None]
